FAERS Safety Report 8213400-9 (Version None)
Quarter: 2012Q1

REPORT INFORMATION
  Report Type: 
  Country: None (occurrence: None)
  Receive Date: 20120315
  Receipt Date: 20120308
  Transmission Date: 20120608
  Serious: Yes (Hospitalization)
  Sender: FDA-Public Use
  Company Number: PHHY2012SG021312

PATIENT
  Age: 84 Year
  Sex: Male

DRUGS (4)
  1. METRONIDAZOLE [Suspect]
  2. ALFUZOSIN HCL [Suspect]
  3. AMOXICILLIN AND CLAVULANATE POTASSIUM [Suspect]
  4. CEFTRIAXONE [Suspect]

REACTIONS (1)
  - STEVENS-JOHNSON SYNDROME [None]
